FAERS Safety Report 6520040-6 (Version None)
Quarter: 2009Q4

REPORT INFORMATION
  Report Type: 
  Country: None (occurrence: None)
  Receive Date: 20091229
  Receipt Date: 20091215
  Transmission Date: 20100525
  Serious: Yes (Hospitalization, Other)
  Sender: FDA-Public Use
  Company Number: PHEH2008US01304

PATIENT
  Age: 45 Year
  Sex: Female

DRUGS (24)
  1. ZELNORM [Suspect]
     Indication: IRRITABLE BOWEL SYNDROME
     Dosage: 6 MG, BID
     Dates: start: 20021108
  2. ZELNORM [Suspect]
     Indication: CONSTIPATION
  3. PLAVIX [Concomitant]
     Dosage: 75 MG, QD
  4. LEXAPRO [Concomitant]
     Dosage: 10 MG, QD
  5. ASPIRIN [Concomitant]
     Dosage: 325 MG, QD
  6. CRESTOR [Concomitant]
     Dosage: 10 MG, QD
  7. METOPROLOL TARTRATE [Concomitant]
     Dosage: 100 MG, QD
  8. LOVAZA [Concomitant]
     Dosage: 1 G, BID
  9. XANAX [Concomitant]
     Dosage: UNK
  10. TOPROL-XL [Concomitant]
     Dosage: 100 MG, UNK
  11. LIPITOR [Concomitant]
  12. VYTORIN [Concomitant]
     Dosage: 10/20
  13. WELLBUTRIN [Concomitant]
     Dosage: 300 MG, QD
  14. ATARAX [Concomitant]
  15. PREVACID [Concomitant]
  16. FLEXERIL [Concomitant]
     Indication: MUSCLE STRAIN
  17. MACROBID [Concomitant]
     Indication: URINARY TRACT INFECTION
     Dosage: 100 MG, BID X 7 DAYS
  18. BACTRIM [Concomitant]
  19. ZYPREXA [Concomitant]
  20. ZYRTEC [Concomitant]
     Dosage: 10 MG, UNK
  21. PAXIL [Concomitant]
     Dosage: 20 MG, QD
  22. LORTAB [Concomitant]
  23. CHANTIX [Concomitant]
  24. ESTRACE [Concomitant]
     Dosage: 1 MG, QD
     Route: 048

REACTIONS (16)
  - AORTIC VALVE DISEASE [None]
  - CATHETERISATION CARDIAC [None]
  - CHEST DISCOMFORT [None]
  - CHEST PAIN [None]
  - CHILLS [None]
  - CORONARY ANGIOPLASTY [None]
  - CORONARY ARTERY DISEASE [None]
  - HYPERLIPIDAEMIA [None]
  - HYPERTENSION [None]
  - HYSTERECTOMY [None]
  - MYALGIA [None]
  - MYOCARDIAL INFARCTION [None]
  - NAUSEA [None]
  - PAIN IN JAW [None]
  - STENT PLACEMENT [None]
  - TREMOR [None]
